FAERS Safety Report 6258424-6 (Version None)
Quarter: 2009Q3

REPORT INFORMATION
  Report Type: 
  Country: None (occurrence: None)
  Receive Date: 20090701
  Receipt Date: 20081201
  Transmission Date: 20100115
  Serious: Yes (Other)
  Sender: FDA-Public Use
  Company Number: 600839

PATIENT
  Sex: Male
  Weight: 88.5 kg

DRUGS (1)
  1. KLONOPIN [Suspect]
     Indication: PANIC DISORDER
     Dosage: 4 MG DAILY

REACTIONS (3)
  - COGNITIVE DISORDER [None]
  - DRUG DEPENDENCE [None]
  - MEMORY IMPAIRMENT [None]
